FAERS Safety Report 17901564 (Version 1)
Quarter: 2020Q2

REPORT INFORMATION
  Report Type: Spontaneous
  Country: CN (occurrence: CN)
  Receive Date: 20200616
  Receipt Date: 20200616
  Transmission Date: 20200714
  Serious: Yes (Other)
  Sender: FDA-Public Use
  Company Number: CN-PFIZER INC-2020231356

PATIENT
  Age: 97 Year
  Sex: Male

DRUGS (5)
  1. TAZOCIN [Concomitant]
     Active Substance: PIPERACILLIN SODIUM\TAZOBACTAM SODIUM
     Indication: PNEUMONITIS
     Dosage: 4.5 G, 3X/DAY
     Route: 041
     Dates: start: 20200528, end: 20200611
  2. LOSEC [OMEPRAZOLE SODIUM] [Concomitant]
     Active Substance: OMEPRAZOLE SODIUM
     Indication: PROPHYLAXIS
     Dosage: 40 MG, 2X/DAY
     Route: 041
     Dates: start: 20200516, end: 20200611
  3. ZYVOX [Suspect]
     Active Substance: LINEZOLID
     Indication: PNEUMONITIS
     Dosage: 0.6 G, 2X/DAY
     Route: 041
     Dates: start: 20200520, end: 20200531
  4. CLEXANE [Suspect]
     Active Substance: ENOXAPARIN SODIUM
     Indication: VENOUS THROMBOSIS LIMB
     Dosage: 0.6 ML, 1X/DAY
     Route: 058
     Dates: start: 20200526, end: 20200603
  5. TIENAM [Concomitant]
     Active Substance: CILASTATIN SODIUM\IMIPENEM
     Indication: PNEUMONITIS
     Dosage: 0.5 G, 3X/DAY
     Route: 041
     Dates: start: 20200520, end: 20200528

REACTIONS (3)
  - Platelet count decreased [Recovering/Resolving]
  - Haemorrhage subcutaneous [Unknown]
  - Injection site haemorrhage [Unknown]

NARRATIVE: CASE EVENT DATE: 20200531
